FAERS Safety Report 14619634 (Version 2)
Quarter: 2018Q1

REPORT INFORMATION
  Report Type: Spontaneous
  Country: ES (occurrence: ES)
  Receive Date: 20180309
  Receipt Date: 20180326
  Transmission Date: 20180509
  Serious: Yes (Life-Threatening, Hospitalization, Other)
  Sender: FDA-Public Use
  Company Number: ES-BRISTOL-MYERS SQUIBB COMPANY-BMS-2018-021069

PATIENT
  Age: 69 Year
  Sex: Female

DRUGS (7)
  1. MANITOL [Suspect]
     Active Substance: MANNITOL
     Indication: PRODUCT USED FOR UNKNOWN INDICATION
     Dosage: UNK
     Route: 065
     Dates: start: 20180127, end: 20180205
  2. RANITIDINA                         /00550802/ [Concomitant]
     Active Substance: RANITIDINE HYDROCHLORIDE
     Indication: PRODUCT USED FOR UNKNOWN INDICATION
     Route: 065
  3. METFORMIN HYDROCHLORIDE. [Suspect]
     Active Substance: METFORMIN HYDROCHLORIDE
     Indication: DIABETES MELLITUS
     Route: 065
  4. SITAGLIPTINA                       /05710001/ [Suspect]
     Active Substance: SITAGLIPTIN
     Indication: PRODUCT USED FOR UNKNOWN INDICATION
     Route: 065
  5. SEVOFLURANO BAXTER 100% L?QUIDO PARA INALA??O POR VAPORIZA??O [Suspect]
     Active Substance: SEVOFLURANE
     Indication: GENERAL ANAESTHESIA
     Dosage: 1 DF, UNK
     Route: 045
     Dates: start: 20180205
  6. ACETAZOLAMIDA (226A) [Suspect]
     Active Substance: ACETAZOLAMIDE
     Indication: GLAUCOMA
     Dosage: UNK
     Route: 048
     Dates: start: 20180127, end: 20180205
  7. ATORVASTATIN                       /01326102/ [Concomitant]
     Active Substance: ATORVASTATIN
     Indication: PRODUCT USED FOR UNKNOWN INDICATION
     Route: 065

REACTIONS (2)
  - Cardio-respiratory arrest [Unknown]
  - Acidosis [Not Recovered/Not Resolved]

NARRATIVE: CASE EVENT DATE: 20180206
